FAERS Safety Report 6596937-8 (Version None)
Quarter: 2010Q1

REPORT INFORMATION
  Report Type: 
  Country: None (occurrence: None)
  Receive Date: 20100223
  Receipt Date: 20100106
  Transmission Date: 20100710
  Serious: Yes (Other)
  Sender: FDA-Public Use
  Company Number: US-PURDUE-USA-2010-0041824

PATIENT
  Age: 66 Year
  Sex: Male
  Weight: 78.005 kg

DRUGS (4)
  1. OXYCONTIN [Suspect]
     Indication: ANALGESIC THERAPY
     Dosage: 20 MG, QID
     Dates: start: 19990205, end: 20050211
  2. OXYCONTIN [Suspect]
     Indication: BACK PAIN
  3. NABUMETONE [Concomitant]
     Indication: DRUG USE FOR UNKNOWN INDICATION
     Dosage: 750 MG, BID
  4. WELLBUTRIN [Concomitant]
     Indication: DRUG USE FOR UNKNOWN INDICATION

REACTIONS (7)
  - AGGRESSION [None]
  - ANXIETY [None]
  - DEPRESSION [None]
  - FLASHBACK [None]
  - INSOMNIA [None]
  - STRESS [None]
  - SUICIDAL IDEATION [None]
